FAERS Safety Report 8161825-2 (Version None)
Quarter: 2012Q1

REPORT INFORMATION
  Report Type: 
  Country: None (occurrence: None)
  Receive Date: 20120224
  Receipt Date: 20110720
  Transmission Date: 20120608
  Serious: No
  Sender: FDA-Public Use
  Company Number: US-BRISTOL-MYERS SQUIBB COMPANY-15864150

PATIENT
  Age: 71 Year
  Sex: Female
  Weight: 61 kg

DRUGS (1)
  1. METFORMIN HCL [Suspect]
     Indication: DIABETES MELLITUS
     Dates: end: 20110501

REACTIONS (5)
  - PAIN [None]
  - DYSGEUSIA [None]
  - HYPOACUSIS [None]
  - CONTUSION [None]
  - WEIGHT INCREASED [None]
